FAERS Safety Report 10422301 (Version 1)
Quarter: 2014Q3

REPORT INFORMATION
  Report Type: Spontaneous
  Country: NO (occurrence: NO)
  Receive Date: 20140901
  Receipt Date: 20140901
  Transmission Date: 20150326
  Serious: Yes (Hospitalization)
  Sender: FDA-Public Use
  Company Number: NO-009507513-1409NOR000311

PATIENT
  Age: 61 Year
  Sex: Male

DRUGS (9)
  1. EPINAT [Concomitant]
     Dosage: UNK
  2. ALLOPUR [Concomitant]
     Active Substance: ALLOPURINOL
     Dosage: UNK
  3. ZOFRAN [Concomitant]
     Active Substance: ONDANSETRON HYDROCHLORIDE
     Dosage: UNK
  4. EMEND [Suspect]
     Active Substance: APREPITANT
     Indication: NAUSEA
     Dosage: UNK, STRENGTH: 125 MG AND 80 MG
     Route: 048
     Dates: start: 20140211, end: 20140213
  5. AFIPRAN [Concomitant]
     Dosage: UNK
  6. KETORAX [Concomitant]
     Active Substance: KETOBEMIDONE HYDROCHLORIDE
     Dosage: UNK
  7. SENDOXAN [Concomitant]
     Active Substance: CYCLOPHOSPHAMIDE
     Dosage: UNK
  8. FRAGMIN [Concomitant]
     Active Substance: DALTEPARIN SODIUM
     Dosage: UNK
  9. MESNA. [Concomitant]
     Active Substance: MESNA
     Dosage: UNK

REACTIONS (4)
  - Mucosal haemorrhage [Recovered/Resolved]
  - Mucosal inflammation [Recovered/Resolved]
  - Oedema mucosal [Recovered/Resolved]
  - Mucosal pain [Recovered/Resolved]

NARRATIVE: CASE EVENT DATE: 20140225
